FAERS Safety Report 4502838-9 (Version None)
Quarter: 2004Q4

REPORT INFORMATION
  Report Type: 
  Country: None (occurrence: None)
  Receive Date: 20041117
  Receipt Date: 20041109
  Transmission Date: 20050328
  Serious: Yes (Hospitalization)
  Sender: FDA-Public Use
  Company Number: US-JNJFOC-20040802434

PATIENT
  Sex: Female
  Weight: 49.44 kg

DRUGS (6)
  1. DURAGESIC [Suspect]
     Route: 062
     Dates: start: 20010401
  2. DURAGESIC [Suspect]
     Route: 062
     Dates: start: 20010401
  3. DURAGESIC [Suspect]
     Route: 062
     Dates: start: 20010401
  4. CLONAZEPAM [Concomitant]
     Dosage: AT NIGHT
     Route: 049
  5. LEXAPRO [Concomitant]
     Route: 049
  6. IRON [Concomitant]
     Route: 049

REACTIONS (6)
  - APPLICATION SITE DERMATITIS [None]
  - APPLICATION SITE ERYTHEMA [None]
  - APPLICATION SITE REACTION [None]
  - HYPERHIDROSIS [None]
  - PHARMACEUTICAL PRODUCT COMPLAINT [None]
  - PNEUMONIA [None]
